FAERS Safety Report 16313326 (Version 4)
Quarter: 2019Q3

REPORT INFORMATION
  Report Type: Report from Study
  Country: None (occurrence: NL)
  Receive Date: 20190515
  Receipt Date: 20190725
  Transmission Date: 20191004
  Serious: Yes (Other)
  Sender: FDA-Public Use
  Company Number: NL-ABBVIE-19S-114-2783527-00

PATIENT
  Age: 68 Year
  Sex: Male

DRUGS (2)
  1. DUODOPA [Suspect]
     Active Substance: CARBIDOPA\LEVODOPA
     Dosage: DOSE TEXT: CD 4.0
     Route: 050
  2. DUODOPA [Suspect]
     Active Substance: CARBIDOPA\LEVODOPA
     Indication: PARKINSON^S DISEASE
     Dosage: 16 HOURS PUMP USE MD 13.4 CD 3.8 ED 2.0
     Route: 050
     Dates: start: 20081128

REACTIONS (13)
  - Gait disturbance [Not Recovered/Not Resolved]
  - Dyskinesia [Not Recovered/Not Resolved]
  - Urinary incontinence [Not Recovered/Not Resolved]
  - Upper limb fracture [Recovering/Resolving]
  - Fluid intake reduced [Not Recovered/Not Resolved]
  - Fall [Not Recovered/Not Resolved]
  - Delirium [Unknown]
  - Hallucination [Recovered/Resolved]
  - Dyschezia [Not Recovered/Not Resolved]
  - Fall [Recovered/Resolved]
  - Urine abnormality [Not Recovered/Not Resolved]
  - Abnormal faeces [Not Recovered/Not Resolved]
  - On and off phenomenon [Not Recovered/Not Resolved]

NARRATIVE: CASE EVENT DATE: 20190416
